FAERS Safety Report 8553270-2 (Version None)
Quarter: 2012Q3

REPORT INFORMATION
  Report Type: 
  Country: None (occurrence: None)
  Receive Date: 20120731
  Receipt Date: 20120721
  Transmission Date: 20120928
  Serious: Yes (Other)
  Sender: FDA-Public Use
  Company Number: US-BAYER-2012-028669

PATIENT
  Age: 24 Year
  Sex: Female
  Weight: 83.9 kg

DRUGS (15)
  1. EFFEXOR XR [Concomitant]
     Dosage: 75 MG, UNK
     Dates: start: 20090828
  2. OXYCODONE HCL AND ACETAMINOPHEN [Concomitant]
     Indication: PAIN
     Dosage: 5/325 MG
     Dates: start: 20090910
  3. OXYCODONE HCL AND ACETAMINOPHEN [Concomitant]
     Dosage: 5-500 MG
     Dates: start: 20090925
  4. YAZ [Suspect]
     Indication: ACNE
     Dosage: UNK
     Dates: start: 20080401, end: 20090301
  5. PROMETHAZINE [Concomitant]
     Dosage: 25 MG, UNK
     Dates: start: 20090921
  6. ATENOLOL [Concomitant]
     Indication: BLOOD PRESSURE ABNORMAL
     Dosage: 50 MG, BID
     Dates: start: 20060101, end: 20110201
  7. HYDROCODONE BITARTRATE AND ACETAMINOPHEN [Concomitant]
     Dosage: 5-500 MG
  8. DROSPIRENONE AND ETHINYL ESTRADIOL [Suspect]
     Indication: ACNE
     Dosage: UNK
     Dates: start: 20090401, end: 20091101
  9. YASMIN [Suspect]
  10. CEFADROXIL [Concomitant]
     Dosage: 500 MG, UNK
     Dates: start: 20090814
  11. AMOXICILLIN [Concomitant]
     Dosage: 500 MG, UNK
     Dates: start: 20090910
  12. HYDROCHLOROTHIAZIDE [Concomitant]
     Indication: BLOOD PRESSURE ABNORMAL
     Dosage: WITHIN 20 DAYS OF INJURIES
  13. FLUCONAZOLE [Concomitant]
     Dosage: 150 MG, UNK
     Dates: start: 20090821
  14. CELEBREX [Concomitant]
     Dosage: 200 MG, UNK
     Dates: start: 20090910
  15. AMLODIPINE [Concomitant]
     Dosage: 5 MG, UNK
     Dates: start: 20091102

REACTIONS (8)
  - GENERAL PHYSICAL HEALTH DETERIORATION [None]
  - HAEMANGIOMA OF LIVER [None]
  - EMOTIONAL DISTRESS [None]
  - HEPATIC LESION [None]
  - PAIN [None]
  - FOCAL NODULAR HYPERPLASIA [None]
  - LENTIGO [None]
  - ANXIETY [None]
